FAERS Safety Report 23725889 (Version 1)
Quarter: 2024Q2

REPORT INFORMATION
  Report Type: Spontaneous
  Country: CH (occurrence: CH)
  Receive Date: 20240410
  Receipt Date: 20240410
  Transmission Date: 20240716
  Serious: Yes (Hospitalization)
  Sender: FDA-Public Use
  Company Number: None

PATIENT
  Age: 80 Year
  Sex: Female

DRUGS (6)
  1. STALEVO [Suspect]
     Active Substance: CARBIDOPA\ENTACAPONE\LEVODOPA
     Indication: Parkinson^s disease
     Dosage: STRENGTH: 200/50/200 MG
     Dates: start: 20231219, end: 202402
  2. XARELTO [Concomitant]
     Active Substance: RIVAROXABAN
     Dosage: CHRONIC THERAPY
  3. ALDACTONE [Concomitant]
     Active Substance: SPIRONOLACTONE
     Dosage: CHRONIC THERAPY
  4. PITAVASTATIN CALCIUM [Concomitant]
     Active Substance: PITAVASTATIN CALCIUM
     Dosage: CHRONIC THERAPY
  5. PANTOZOL [Concomitant]
     Active Substance: PANTOPRAZOLE SODIUM
     Dosage: CHRONIC THERAPY
  6. QUETIAPIN SPIRIG HC [Concomitant]
     Dosage: CHRONIC THERAPY

REACTIONS (3)
  - Chorea [Recovering/Resolving]
  - Abdominal pain [Recovered/Resolved]
  - Dystonia [Recovered/Resolved]

NARRATIVE: CASE EVENT DATE: 20231201
